FAERS Safety Report 5925921-X (Version None)
Quarter: 2008Q3

REPORT INFORMATION
  Report Type: 
  Country: None (occurrence: None)
  Receive Date: 20080923
  Receipt Date: 20070821
  Transmission Date: 20090109
  Serious: Yes (Hospitalization)
  Sender: FDA-Public Use
  Company Number: WAES 0708USA04001

PATIENT
  Age: 72 Year
  Sex: Female

DRUGS (7)
  1. VYTORIN [Suspect]
     Indication: BLOOD CHOLESTEROL INCREASED
     Dosage: 10-40 MG/PO
     Route: 048
     Dates: start: 20040101, end: 20070712
  2. VYTORIN [Suspect]
     Indication: HYPERLIPIDAEMIA
     Dosage: 10-40 MG/PO
     Route: 048
     Dates: start: 20040101, end: 20070712
  3. VYTORIN [Suspect]
     Indication: BLOOD CHOLESTEROL INCREASED
     Dosage: 10-40 MG/PO
     Route: 048
     Dates: start: 20070722, end: 20070728
  4. VYTORIN [Suspect]
     Indication: HYPERLIPIDAEMIA
     Dosage: 10-40 MG/PO
     Route: 048
     Dates: start: 20070722, end: 20070728
  5. VYTORIN [Suspect]
     Indication: BLOOD CHOLESTEROL INCREASED
     Dosage: 10-80 MG/DAILY/PO
     Route: 048
     Dates: start: 20070713, end: 20070721
  6. VYTORIN [Suspect]
     Indication: HYPERLIPIDAEMIA
     Dosage: 10-80 MG/DAILY/PO
     Route: 048
     Dates: start: 20070713, end: 20070721
  7. SYNTHROID [Concomitant]

REACTIONS (4)
  - CONSTIPATION [None]
  - FALL [None]
  - OEDEMA PERIPHERAL [None]
  - RHABDOMYOLYSIS [None]
